FAERS Safety Report 9825276 (Version 2)
Quarter: 2014Q1

REPORT INFORMATION
  Report Type: Report from Study
  Country: AR (occurrence: AR)
  Receive Date: 20140117
  Receipt Date: 20140306
  Transmission Date: 20141002
  Serious: No
  Sender: FDA-Public Use
  Company Number: PHHY2014AR005156

PATIENT
  Sex: Male

DRUGS (2)
  1. DIOVAN [Suspect]
     Indication: HYPERTENSION
     Dosage: 1 DF (160MG), DAILY
     Route: 048
  2. DIURET [Concomitant]
     Indication: HYPERTENSION
     Dosage: 1 DF (25MG), DAILY
     Route: 048

REACTIONS (5)
  - Blood glucose decreased [Not Recovered/Not Resolved]
  - Glucose tolerance impaired [Not Recovered/Not Resolved]
  - Weight increased [Not Recovered/Not Resolved]
  - Overweight [Not Recovered/Not Resolved]
  - Metabolic disorder [Not Recovered/Not Resolved]
